FAERS Safety Report 10178455 (Version 1)
Quarter: 2014Q2

REPORT INFORMATION
  Report Type: Spontaneous
  Country: US (occurrence: None)
  Receive Date: 20140516
  Receipt Date: 20140516
  Transmission Date: 20141212
  Serious: Yes (Life-Threatening, Disabling)
  Sender: FDA-Public Use
  Company Number: None

PATIENT
  Age: 50 Year
  Sex: Female

DRUGS (1)
  1. ALPRAZOLAM [Suspect]
     Indication: PRODUCT USED FOR UNKNOWN INDICATION
     Dosage: .5 MG 2 PILLS PER DAY?TWICE DAILY ?TAKEN BY MOUTH
     Route: 048
     Dates: start: 20100912, end: 20111121

REACTIONS (14)
  - Panic attack [None]
  - Anxiety [None]
  - Eating disorder [None]
  - Weight decreased [None]
  - Dysphagia [None]
  - Insomnia [None]
  - Fear [None]
  - Depersonalisation [None]
  - Derealisation [None]
  - Movement disorder [None]
  - Head discomfort [None]
  - Headache [None]
  - Drug withdrawal syndrome [None]
  - Drug tolerance [None]
